FAERS Safety Report 4617818-2 (Version None)
Quarter: 2005Q1

REPORT INFORMATION
  Report Type: 
  Country: None (occurrence: None)
  Receive Date: 20050324
  Receipt Date: 20041004
  Transmission Date: 20050727
  Serious: Yes (Hospitalization, Other)
  Sender: FDA-Public Use
  Company Number: US-GLAXOSMITHKLINE-A0529300A

PATIENT
  Sex: Male

DRUGS (2)
  1. PAXIL [Suspect]
     Indication: PANIC ATTACK
     Dosage: 80MG PER DAY
     Route: 048
  2. XANAX [Concomitant]
     Indication: ANXIETY
     Dosage: .25MG PER DAY
     Route: 048
     Dates: start: 20010101

REACTIONS (3)
  - CONVULSION [None]
  - DEPENDENCE [None]
  - DRUG WITHDRAWAL SYNDROME [None]
